FAERS Safety Report 8049854-0 (Version None)
Quarter: 2012Q1

REPORT INFORMATION
  Report Type: 
  Country: None (occurrence: None)
  Receive Date: 20120117
  Receipt Date: 20120109
  Transmission Date: 20120608
  Serious: Yes (Other)
  Sender: FDA-Public Use
  Company Number: US-BAYER-2011-124614

PATIENT
  Age: 74 Year
  Sex: Female
  Weight: 58 kg

DRUGS (5)
  1. CALCIUM CARBONATE [Suspect]
     Dosage: 1 DF, QD
     Route: 048
     Dates: start: 20111225, end: 20111225
  2. PRAVASTATIN [Concomitant]
  3. TIMOLOL MALEATE [Concomitant]
  4. ATENOLOL [Concomitant]
  5. CALCIUM CARBONATE [Suspect]
     Dosage: 2 DF, BID
     Route: 048
     Dates: start: 20111101, end: 20111223

REACTIONS (1)
  - EXTRASYSTOLES [None]
